FAERS Safety Report 7532315-2 (Version None)
Quarter: 2011Q2

REPORT INFORMATION
  Report Type: 
  Country: None (occurrence: None)
  Receive Date: 20110608
  Receipt Date: 20110601
  Transmission Date: 20111010
  Serious: Yes (Hospitalization)
  Sender: FDA-Public Use
  Company Number: JP-MERCK-1012USA00985

PATIENT
  Age: 83 Year
  Sex: Female

DRUGS (9)
  1. FOSAMAX [Suspect]
     Indication: OSTEOPOROSIS
     Route: 048
     Dates: start: 20071128, end: 20100515
  2. CALMISAL [Concomitant]
     Indication: OSTEOPOROSIS
     Route: 048
     Dates: start: 19980526
  3. DIDRONEL [Concomitant]
     Indication: OSTEOPOROSIS
     Route: 048
     Dates: start: 20010329
  4. FOSAMAX [Suspect]
     Route: 048
     Dates: start: 20030425, end: 20071127
  5. WARKMIN [Concomitant]
     Indication: OSTEOPOROSIS
     Route: 048
     Dates: start: 20071128
  6. RANITAC [Concomitant]
     Indication: GASTRITIS
     Route: 048
     Dates: end: 20100515
  7. ASPARA CA [Concomitant]
     Indication: OSTEOPOROSIS
     Route: 048
     Dates: start: 19980526
  8. GLAKAY [Concomitant]
     Indication: OSTEOPOROSIS
     Route: 048
     Dates: start: 20010412
  9. D-ALPHA [Concomitant]
     Indication: OSTEOPOROSIS
     Route: 048
     Dates: start: 20030425

REACTIONS (2)
  - FEMUR FRACTURE [None]
  - EXOSTOSIS [None]
